FAERS Safety Report 13490384 (Version 1)
Quarter: 2017Q2

REPORT INFORMATION
  Report Type: Report from Study
  Country: VN (occurrence: VN)
  Receive Date: 20170427
  Receipt Date: 20170427
  Transmission Date: 20170830
  Serious: Yes (Other)
  Sender: FDA-Public Use
  Company Number: VN-ROCHE-1921648

PATIENT

DRUGS (2)
  1. CISPLATIN. [Suspect]
     Active Substance: CISPLATIN
     Indication: OESOPHAGEAL CARCINOMA
     Route: 065
  2. CAPECITABINE. [Suspect]
     Active Substance: CAPECITABINE
     Indication: OESOPHAGEAL CARCINOMA
     Route: 065

REACTIONS (7)
  - White blood cell count abnormal [Unknown]
  - Nausea [Unknown]
  - Diarrhoea [Unknown]
  - Platelet toxicity [Unknown]
  - Vomiting [Unknown]
  - Chest pain [Unknown]
  - Haematotoxicity [Unknown]
